FAERS Safety Report 4612969-0 (Version None)
Quarter: 2005Q1

REPORT INFORMATION
  Report Type: 
  Country: None (occurrence: None)
  Receive Date: 20050318
  Receipt Date: 20050310
  Transmission Date: 20050727
  Serious: Yes (Hospitalization)
  Sender: FDA-Public Use
  Company Number: IT-ROCHE-398500

PATIENT
  Age: 38 Year
  Sex: Female

DRUGS (5)
  1. PEGASYS [Suspect]
     Dosage: /WEEK, FORMULATION REPORTED AS VIAL.
     Route: 058
     Dates: start: 20040312, end: 20041229
  2. COPEGUS [Concomitant]
     Route: 048
     Dates: start: 20040312, end: 20041220
  3. ZERIT [Concomitant]
     Dates: start: 20020719, end: 20050216
  4. EPIVIR [Concomitant]
     Dates: start: 20020719, end: 20050216
  5. SUSTIVA [Concomitant]
     Dates: start: 20020719, end: 20050216

REACTIONS (2)
  - PERICARDIAL EFFUSION [None]
  - PERICARDITIS [None]
